FAERS Safety Report 4713137-4 (Version None)
Quarter: 2005Q3

REPORT INFORMATION
  Report Type: 
  Country: None (occurrence: None)
  Receive Date: 20050712
  Receipt Date: 20050712
  Transmission Date: 20060218
  Serious: Yes (Life-Threatening, Hospitalization, Disabling)
  Sender: FDA-Public Use
  Company Number: None

PATIENT
  Age: 46 Year
  Sex: Male

DRUGS (7)
  1. LIPITOR [Suspect]
     Indication: HYPERLIPIDAEMIA
     Dosage: 1 TAB PO QD
     Route: 048
  2. GLUCOPHAGE [Concomitant]
  3. GLUCOTROL [Concomitant]
  4. LISINOPRIL [Concomitant]
  5. PREDNISONE [Concomitant]
  6. GLIPIZIDE [Concomitant]
  7. SYNTHROID [Concomitant]

REACTIONS (14)
  - ALANINE AMINOTRANSFERASE INCREASED [None]
  - ANOREXIA [None]
  - ASPARTATE AMINOTRANSFERASE INCREASED [None]
  - ASTHENIA [None]
  - DYSSTASIA [None]
  - LOSS OF CONSCIOUSNESS [None]
  - MYOGLOBIN URINE [None]
  - OXYGEN SATURATION DECREASED [None]
  - PNEUMONIA ASPIRATION [None]
  - PYREXIA [None]
  - RESPIRATORY FAILURE [None]
  - RHABDOMYOLYSIS [None]
  - SOCIAL AVOIDANT BEHAVIOUR [None]
  - UNRESPONSIVE TO VERBAL STIMULI [None]
